FAERS Safety Report 5304351-8 (Version None)
Quarter: 2007Q2

REPORT INFORMATION
  Report Type: 
  Country: None (occurrence: None)
  Receive Date: 20070423
  Receipt Date: 20070413
  Transmission Date: 20071010
  Serious: Yes (Hospitalization)
  Sender: FDA-Public Use
  Company Number: CA-ROCHE-416201

PATIENT
  Age: 57 Year
  Sex: Male
  Weight: 65 kg

DRUGS (14)
  1. CAPECITABINE [Suspect]
     Route: 048
     Dates: start: 20050714
  2. CAPECITABINE [Suspect]
     Dosage: GIVEN ON DAYS 1 -14.
     Route: 048
     Dates: start: 20050928
  3. BEVACIZUMAB [Suspect]
     Route: 042
     Dates: start: 20050714
  4. OXALIPLATIN [Suspect]
     Route: 042
     Dates: start: 20050714
  5. SYNTHROID [Concomitant]
     Dates: start: 20050829
  6. OXYCODONE HCL [Concomitant]
     Dates: start: 20050831
  7. VALTREX [Concomitant]
     Dates: start: 20050830
  8. FLAGYL [Concomitant]
     Dates: start: 20050830
  9. ZOFRAN [Concomitant]
     Dates: start: 20050830, end: 20050830
  10. MAXERAN [Concomitant]
     Dates: start: 20050830, end: 20050830
  11. VIT D [Concomitant]
     Dates: start: 20050829
  12. MULTI-VITAMIN [Concomitant]
     Dates: start: 20050829
  13. LOSEC [Concomitant]
     Dates: start: 20050829
  14. IMODIUM [Concomitant]
     Dates: start: 20050829

REACTIONS (1)
  - GASTROENTERITIS [None]
